FAERS Safety Report 5195422-8 (Version None)
Quarter: 2006Q4

REPORT INFORMATION
  Report Type: 
  Country: None (occurrence: None)
  Receive Date: 20061229
  Receipt Date: 20061211
  Transmission Date: 20070319
  Serious: Yes (Other)
  Sender: FDA-Public Use
  Company Number: US-PFIZER INC-2006153183

PATIENT
  Sex: Female
  Weight: 79.4 kg

DRUGS (7)
  1. DILANTIN [Suspect]
  2. PROCRIT [Suspect]
     Indication: ANAEMIA
     Route: 058
  3. PROCRIT [Suspect]
     Route: 058
  4. WARFARIN SODIUM [Concomitant]
     Indication: HYPERCOAGULATION
  5. KEPPRA [Concomitant]
  6. MESALAZINE [Concomitant]
     Indication: CROHN'S DISEASE
  7. PREDNISONE TAB [Concomitant]
     Dosage: DAILY DOSE:80MG-FREQ:DAILY

REACTIONS (5)
  - APLASIA PURE RED CELL [None]
  - DRUG INEFFECTIVE [None]
  - DRUG SPECIFIC ANTIBODY ABSENT [None]
  - HAEMOGLOBIN DECREASED [None]
  - RETICULOCYTE COUNT DECREASED [None]
